FAERS Safety Report 6737591-1 (Version None)
Quarter: 2010Q2

REPORT INFORMATION
  Report Type: 
  Country: None (occurrence: None)
  Receive Date: 20100524
  Receipt Date: 20100421
  Transmission Date: 20101027
  Serious: No
  Sender: FDA-Public Use
  Company Number: US-BAYER-201014644BCC

PATIENT
  Age: 80 Year
  Sex: Female
  Weight: 66 kg

DRUGS (7)
  1. ALEVE (CAPLET) [Suspect]
     Indication: JOINT SWELLING
     Dosage: TOTAL DAILY DOSE: 220 MG  UNIT DOSE: 220 MG
     Route: 048
     Dates: start: 20100416
  2. CITRACAL MAXIMUM [Concomitant]
  3. LECITHIN [Concomitant]
  4. ASPIRIN [Concomitant]
  5. CELERY [Concomitant]
  6. PARSLEY [Concomitant]
  7. BRIMONIDINE 0.2% [Concomitant]
     Dosage: TOTAL DAILY DOSE: 2 GTT  UNIT DOSE: 1 GTT
     Route: 061

REACTIONS (3)
  - ABDOMINAL PAIN UPPER [None]
  - DYSGEUSIA [None]
  - THROAT IRRITATION [None]
